FAERS Safety Report 6747092-2 (Version None)
Quarter: 2010Q2

REPORT INFORMATION
  Report Type: 
  Country: None (occurrence: None)
  Receive Date: 20100528
  Receipt Date: 20100520
  Transmission Date: 20101027
  Serious: Yes (Hospitalization)
  Sender: FDA-Public Use
  Company Number: US-ABBOTT-10P-163-0646534-00

PATIENT

DRUGS (2)
  1. SYNTHROID [Suspect]
     Indication: HYPOTHYROIDISM
     Dates: start: 20070101
  2. ATIVAN [Concomitant]
     Indication: ANXIETY
     Dosage: HALF A TABLET

REACTIONS (6)
  - ARTHROPOD BITE [None]
  - ASTHENIA [None]
  - BLOOD SODIUM DECREASED [None]
  - LYME DISEASE [None]
  - MALAISE [None]
  - NAUSEA [None]
